FAERS Safety Report 10129620 (Version 1)
Quarter: 2014Q2

REPORT INFORMATION
  Report Type: Spontaneous
  Country: US (occurrence: US)
  Receive Date: 20140428
  Receipt Date: 20140428
  Transmission Date: 20141212
  Serious: No
  Sender: FDA-Public Use
  Company Number: US-PFIZER INC-2014112606

PATIENT
  Age: 65 Year
  Sex: Female

DRUGS (5)
  1. CEFUROXIME AXETIL [Suspect]
     Indication: BIPOLAR DISORDER
     Dosage: 500 MG, 2X/DAY
  2. NEURONTIN [Suspect]
     Indication: BIPOLAR DISORDER
     Dosage: 200 MG, 2X/DAY
  3. NEURONTIN [Suspect]
     Dosage: 200 MG, 3X/DAY
  4. NEURONTIN [Suspect]
     Dosage: UNK
     Dates: end: 20140420
  5. LEVOXYL [Concomitant]
     Indication: HYPERTHYROIDISM
     Dosage: 75 UG, DAILY

REACTIONS (1)
  - Nausea [Recovered/Resolved]
